FAERS Safety Report 15340520 (Version 1)
Quarter: 2018Q3

REPORT INFORMATION
  Report Type: Spontaneous
  Country: US (occurrence: US)
  Receive Date: 20180831
  Receipt Date: 20180831
  Transmission Date: 20181010
  Serious: No
  Sender: FDA-Public Use
  Company Number: US-PFIZER INC-2018347900

PATIENT
  Age: 51 Year
  Sex: Female

DRUGS (1)
  1. GENOTROPIN MQ [Suspect]
     Active Substance: SOMATROPIN
     Dosage: 0.2 MG, DAILY
     Dates: start: 2012

REACTIONS (4)
  - Blood glucose increased [Unknown]
  - Cortisol decreased [Unknown]
  - Blood corticotrophin increased [Unknown]
  - Blood osmolarity increased [Unknown]

NARRATIVE: CASE EVENT DATE: 20140326
